FAERS Safety Report 5020894-9 (Version None)
Quarter: 2006Q2

REPORT INFORMATION
  Report Type: 
  Country: None (occurrence: None)
  Receive Date: 20060602
  Receipt Date: 20060525
  Transmission Date: 20061013
  Serious: Yes (Other)
  Sender: FDA-Public Use
  Company Number: 2006068676

PATIENT
  Age: 17 Year
  Sex: Female
  Weight: 63.05 kg

DRUGS (1)
  1. SUDAFED NON-DRYING SINUS (PSEUDOEPHEDRINE, GUAIFENESIN) [Suspect]
     Indication: SINUS DISORDER
     Dosage: 2 KAPSEALS 1 TIME, ORAL
     Route: 048
     Dates: start: 20060524, end: 20060524

REACTIONS (6)
  - BLOOD POTASSIUM INCREASED [None]
  - CONVULSION [None]
  - LETHARGY [None]
  - LOSS OF CONSCIOUSNESS [None]
  - MUSCLE TWITCHING [None]
  - SOMNOLENCE [None]
